FAERS Safety Report 9652510 (Version 2)
Quarter: 2013Q4

REPORT INFORMATION
  Report Type: Spontaneous
  Country: US (occurrence: US)
  Receive Date: 20131029
  Receipt Date: 20131220
  Transmission Date: 20140711
  Serious: No
  Sender: FDA-Public Use
  Company Number: US-PFIZER INC-2013305946

PATIENT
  Age: 42 Year
  Sex: Female
  Weight: 54.42 kg

DRUGS (2)
  1. ADVIL PM [Suspect]
     Indication: SLEEP DISORDER
     Dosage: 400 MG (200 MG X 2 TABLETS), DAILY
     Dates: start: 201310
  2. MOTRIN [Concomitant]
     Dosage: 100 MG, UNK

REACTIONS (1)
  - Drug ineffective [Unknown]
